FAERS Safety Report 15103434 (Version 1)
Quarter: 2018Q3

REPORT INFORMATION
  Report Type: Spontaneous
  Country: GB (occurrence: GB)
  Receive Date: 20180703
  Receipt Date: 20180703
  Transmission Date: 20181010
  Serious: Yes (Other)
  Sender: FDA-Public Use
  Company Number: GB-ABBVIE-18K-167-2405903-00

PATIENT
  Age: 72 Year
  Sex: Female

DRUGS (1)
  1. VENETOCLAX. [Suspect]
     Active Substance: VENETOCLAX
     Indication: PRODUCT USED FOR UNKNOWN INDICATION
     Route: 048
     Dates: start: 2018

REACTIONS (4)
  - Pyrexia [Unknown]
  - Non-Hodgkin^s lymphoma [Unknown]
  - Thrombocytopenia [Unknown]
  - Pruritus [Unknown]

NARRATIVE: CASE EVENT DATE: 2018
